FAERS Safety Report 5390734-7 (Version None)
Quarter: 2007Q3

REPORT INFORMATION
  Report Type: 
  Country: None (occurrence: None)
  Receive Date: 20070716
  Receipt Date: 20051007
  Transmission Date: 20080115
  Serious: Yes (Hospitalization)
  Sender: FDA-Public Use
  Company Number: MPS1-10445

PATIENT
  Age: 17 Year
  Sex: Female

DRUGS (1)
  1. ALDURAZYME [Suspect]
     Indication: MUCOPOLYSACCHARIDOSIS I
     Dosage: 1 MG/KG 1XW;IV
     Route: 042
     Dates: start: 20021101, end: 20050901

REACTIONS (23)
  - AREFLEXIA [None]
  - ARRHYTHMIA SUPRAVENTRICULAR [None]
  - CARDIAC DISORDER [None]
  - CEREBRAL ATROPHY [None]
  - DEPRESSED LEVEL OF CONSCIOUSNESS [None]
  - DISEASE PROGRESSION [None]
  - DYSPNOEA EXERTIONAL [None]
  - ESCHERICHIA SEPSIS [None]
  - FLUID RETENTION [None]
  - HAEMODYNAMIC INSTABILITY [None]
  - HYDROCEPHALUS [None]
  - KYPHOSCOLIOSIS [None]
  - MYELITIS [None]
  - NECROSIS [None]
  - NO THERAPEUTIC RESPONSE [None]
  - NUCLEAR MAGNETIC RESONANCE IMAGING BRAIN ABNORMAL [None]
  - PAIN IN EXTREMITY [None]
  - PERIPHERAL NERVE NEUROSTIMULATION [None]
  - PULMONARY OEDEMA [None]
  - QUADRIPLEGIA [None]
  - RESPIRATORY DISORDER [None]
  - SPINAL CORD INFARCTION [None]
  - SUBDURAL HAEMATOMA [None]
